FAERS Safety Report 9680912 (Version 2)
Quarter: 2013Q4

REPORT INFORMATION
  Report Type: Spontaneous
  Country: US (occurrence: US)
  Receive Date: 20131111
  Receipt Date: 20131111
  Transmission Date: 20140711
  Serious: No
  Sender: FDA-Public Use
  Company Number: US-PFIZER INC-2013005752

PATIENT
  Age: 59 Year
  Sex: Female

DRUGS (13)
  1. LYRICA [Suspect]
     Indication: FIBROMYALGIA
     Dosage: 100 MG, 4 TIMES DAILY
     Route: 048
     Dates: start: 20121226
  2. NORCO [Concomitant]
  3. GLUCOPHAGE [Concomitant]
  4. HYDROCHLOROTHIAZIDE [Concomitant]
  5. ZANAFLEX [Concomitant]
  6. VITAMIN D3 [Concomitant]
  7. FEXOFENADINE [Concomitant]
  8. PRILOSEC [Concomitant]
  9. LIDODERM [Concomitant]
  10. COMBIVENT [Concomitant]
  11. SYNTHROID [Concomitant]
  12. LEVOTHROID [Concomitant]
  13. BENADRYL [Concomitant]

REACTIONS (1)
  - Depression [Unknown]
